FAERS Safety Report 6612446-1 (Version None)
Quarter: 2010Q1

REPORT INFORMATION
  Report Type: 
  Country: None (occurrence: None)
  Receive Date: 20100303
  Receipt Date: 20100226
  Transmission Date: 20100710
  Serious: Yes (Death, Other)
  Sender: FDA-Public Use
  Company Number: PHHY2010JP00886

PATIENT
  Sex: Male
  Weight: 72 kg

DRUGS (3)
  1. CO-DIOVAN [Suspect]
     Indication: HYPERTENSION
     Dosage: 1 DF (80/12.5 MG)
     Route: 048
     Dates: start: 20090618
  2. ADALAT CC [Concomitant]
     Indication: HYPERTENSION
     Dosage: PRO RE NATA
     Dates: start: 20081114
  3. ADALAT CC [Concomitant]
     Dosage: 60 MG
     Route: 048
     Dates: start: 20090528

REACTIONS (3)
  - ACUTE MYOCARDIAL INFARCTION [None]
  - CIRCULATORY COLLAPSE [None]
  - HYPERTENSION [None]
